FAERS Safety Report 10716214 (Version 1)
Quarter: 2015Q1

REPORT INFORMATION
  Report Type: Spontaneous
  Country: US (occurrence: None)
  Receive Date: 20150115
  Receipt Date: 20150115
  Transmission Date: 20150721
  Serious: Yes (Hospitalization)
  Sender: FDA-Public Use
  Company Number: None

PATIENT
  Age: 50 Year
  Sex: Female

DRUGS (1)
  1. BOTOX [Suspect]
     Active Substance: ONABOTULINUMTOXINA
     Indication: DYSKINESIA
     Dosage: 100 UNITS Q12W IM
     Route: 030
     Dates: start: 20140820

REACTIONS (2)
  - Asthma [None]
  - Pulmonary embolism [None]

NARRATIVE: CASE EVENT DATE: 20150109
